FAERS Safety Report 21267651 (Version 1)
Quarter: 2022Q3

REPORT INFORMATION
  Report Type: Spontaneous
  Country: US (occurrence: None)
  Receive Date: 20220829
  Receipt Date: 20220829
  Transmission Date: 20221027
  Serious: Yes (Hospitalization)
  Sender: FDA-Public Use
  Company Number: None

PATIENT
  Age: 74 Year
  Sex: Female
  Weight: 63.5 kg

DRUGS (7)
  1. DILTIAZEM HYDROCHLORIDE [Suspect]
     Active Substance: DILTIAZEM HYDROCHLORIDE
     Indication: Hypertension
     Route: 048
     Dates: start: 20220618, end: 20220630
  2. DILTIAZEM HYDROCHLORIDE [Suspect]
     Active Substance: DILTIAZEM HYDROCHLORIDE
     Indication: Supraventricular tachycardia
  3. FLUOXETINE HYDROCHLORIDE [Concomitant]
     Active Substance: FLUOXETINE HYDROCHLORIDE
  4. ROSUVASTATIN CALCIUM [Concomitant]
     Active Substance: ROSUVASTATIN CALCIUM
  5. DORZOLAMIDE\TIMOLOL [Concomitant]
     Active Substance: DORZOLAMIDE\TIMOLOL
  6. LUMIGAN [Concomitant]
     Active Substance: BIMATOPROST
  7. WOMENS ONE A DAY MULTIVITAMIN/MULTIMINERAL SUPPLEMENT [Concomitant]

REACTIONS (8)
  - Dizziness [None]
  - Asthenia [None]
  - Vomiting [None]
  - Movement disorder [None]
  - Dysstasia [None]
  - Chest pain [None]
  - Deafness unilateral [None]
  - Visual impairment [None]

NARRATIVE: CASE EVENT DATE: 20220626
